FAERS Safety Report 23079467 (Version 2)
Quarter: 2024Q1

REPORT INFORMATION
  Report Type: Spontaneous
  Country: US (occurrence: US)
  Receive Date: 20231018
  Receipt Date: 20240214
  Transmission Date: 20240410
  Serious: Yes (Hospitalization)
  Sender: FDA-Public Use
  Company Number: US-SA-SAC20231017000096

PATIENT
  Sex: Male
  Weight: 95.2 kg

DRUGS (24)
  1. DUPIXENT [Suspect]
     Active Substance: DUPILUMAB
     Indication: Asthma
     Dosage: 300 MG, QOW
     Route: 058
  2. ALLEGRA ALLERGY [Concomitant]
     Active Substance: FEXOFENADINE HYDROCHLORIDE
     Dosage: UNK
  3. MAGNESIUM OXIDE [Concomitant]
     Active Substance: MAGNESIUM OXIDE
     Dosage: UNK
  4. VITAMIN D2 [Concomitant]
     Active Substance: ERGOCALCIFEROL
     Dosage: UNK
  5. SPIRIVA RESPIMAT [Concomitant]
     Active Substance: TIOTROPIUM BROMIDE
     Dosage: UNK
  6. ADVAIR HFA [Concomitant]
     Active Substance: FLUTICASONE PROPIONATE\SALMETEROL XINAFOATE
     Dosage: ADVAIR HFA 45-21 MCG HFA AER AD
  7. ALBUTEROL SULFATE [Concomitant]
     Active Substance: ALBUTEROL SULFATE
     Dosage: UNK
  8. VITAMINS NOS [Concomitant]
     Active Substance: VITAMINS
     Dosage: UNK, QD
  9. VITAMINS NOS [Concomitant]
     Active Substance: VITAMINS
     Dosage: 500125MG
  10. NITROGLYCERIN [Concomitant]
     Active Substance: NITROGLYCERIN
     Dosage: NITROGLYCERIN 0.3 MG TAB SUBL
  11. LUMIGAN [Concomitant]
     Active Substance: BIMATOPROST
     Dosage: UNK
  12. MELATONIN [Concomitant]
     Active Substance: MELATONIN
     Dosage: UNK
  13. HYDROXYZINE HYDROCHLORIDE [Concomitant]
     Active Substance: HYDROXYZINE HYDROCHLORIDE
     Dosage: UNK
  14. GABAPENTIN [Concomitant]
     Active Substance: GABAPENTIN
     Dosage: UNK
  15. IRON [Concomitant]
     Active Substance: IRON
     Dosage: IRON 159(45)MG TABLET ER
  16. FENOFIBRATE [Concomitant]
     Active Substance: FENOFIBRATE
     Dosage: UNK
  17. IPRATROPIUM [Concomitant]
     Active Substance: IPRATROPIUM
     Dosage: UNK
  18. ALBUTEROL SULFATE [Concomitant]
     Active Substance: ALBUTEROL SULFATE
     Indication: Asthma
     Dosage: 25 MG
  19. PULMICORT TURBUHALER [Concomitant]
     Active Substance: BUDESONIDE
     Dosage: PULMICORT 0.25MG/2ML AMPUL-NEB
  20. ATORVASTATIN CALCIUM [Concomitant]
     Active Substance: ATORVASTATIN CALCIUM
     Dosage: UNK
  21. ASPIRIN [Concomitant]
     Active Substance: ASPIRIN
     Dosage: UNK
  22. AUGMENTIN XR [Concomitant]
     Active Substance: AMOXICILLIN\CLAVULANATE POTASSIUM
  23. PREDNISONE [Concomitant]
     Active Substance: PREDNISONE
  24. VITAMIN C [Concomitant]
     Active Substance: ASCORBIC ACID
     Dosage: UNK

REACTIONS (3)
  - Asthma [Unknown]
  - Cough [Not Recovered/Not Resolved]
  - Dyspnoea [Not Recovered/Not Resolved]
